FAERS Safety Report 10911451 (Version 1)
Quarter: 2015Q1

REPORT INFORMATION
  Report Type: Spontaneous
  Country: US (occurrence: US)
  Receive Date: 20150313
  Receipt Date: 20150313
  Transmission Date: 20150721
  Serious: No
  Sender: FDA-Public Use
  Company Number: US-009507513-1503USA001688

PATIENT
  Sex: Male

DRUGS (1)
  1. GRASTEK [Suspect]
     Active Substance: PHLEUM PRATENSE POLLEN
     Indication: SEASONAL ALLERGY
     Dosage: 1 DF, QD, 1 TABLET/ ONCE A DAY
     Route: 048
     Dates: start: 20150227, end: 20150303

REACTIONS (2)
  - Lip pruritus [Unknown]
  - Ear discomfort [Unknown]

NARRATIVE: CASE EVENT DATE: 2015
